FAERS Safety Report 4704377-9 (Version None)
Quarter: 2005Q2

REPORT INFORMATION
  Report Type: 
  Country: None (occurrence: None)
  Receive Date: 20050630
  Receipt Date: 20050429
  Transmission Date: 20051028
  Serious: Yes (Other)
  Sender: FDA-Public Use
  Company Number: US-GLAXOSMITHKLINE-A0556335A

PATIENT
  Age: 67 Year
  Sex: Female
  Weight: 65.9 kg

DRUGS (3)
  1. PAROXETINE HCL [Suspect]
     Indication: FIBROMYALGIA
     Dosage: 10MG PER DAY
     Route: 048
     Dates: start: 20050411
  2. PAXIL CR [Suspect]
     Indication: FIBROMYALGIA
     Dosage: 10MG TWICE PER DAY
     Route: 048
     Dates: start: 20030101, end: 20050410
  3. VALSARTAN [Concomitant]
     Indication: HYPERTENSION
     Dosage: 320MG PER DAY
     Route: 048

REACTIONS (10)
  - ASTHENIA [None]
  - DRUG INEFFECTIVE [None]
  - DRUG WITHDRAWAL SYNDROME [None]
  - ENERGY INCREASED [None]
  - FIBROMYALGIA [None]
  - MOOD SWINGS [None]
  - PAIN [None]
  - PHARMACEUTICAL PRODUCT COMPLAINT [None]
  - VISUAL ACUITY REDUCED [None]
  - VISUAL DISTURBANCE [None]
